FAERS Safety Report 16639437 (Version 2)
Quarter: 2019Q3

REPORT INFORMATION
  Report Type: Report from Study
  Country: US (occurrence: US)
  Receive Date: 20190726
  Receipt Date: 20190828
  Transmission Date: 20191004
  Serious: Yes (Hospitalization, Other)
  Sender: FDA-Public Use
  Company Number: US-SEATTLE GENETICS-2019SGN02468

PATIENT
  Age: 17 Year
  Sex: Female
  Weight: 75.4 kg

DRUGS (20)
  1. CLARITIN [Concomitant]
     Active Substance: LORATADINE
     Dosage: 10 MILLIGRAM, QD
     Route: 048
  2. PROTONIX [Concomitant]
     Active Substance: PANTOPRAZOLE SODIUM
     Dosage: 40 MILLIGRAM, Q12H
     Route: 042
  3. VINBLASTINE [Suspect]
     Active Substance: VINBLASTINE
     Indication: HODGKIN^S DISEASE NODULAR SCLEROSIS STAGE IV
     Dosage: 6 MILLIGRAM/SQ. METER
     Route: 042
     Dates: start: 20190625
  4. BENADRYL [Concomitant]
     Active Substance: DIPHENHYDRAMINE HYDROCHLORIDE
     Dosage: 25 MILLIGRAM, Q6HR
  5. ATIVAN [Concomitant]
     Active Substance: LORAZEPAM
     Dosage: 1 MILLIGRAM, Q8HR
     Route: 042
  6. ZYPREXA ZYDIS [Concomitant]
     Active Substance: OLANZAPINE
     Dosage: 5 MILLIGRAM, QD
     Route: 048
  7. KYTRIL [Concomitant]
     Active Substance: GRANISETRON HYDROCHLORIDE
     Dosage: 1 MILLIGRAM, Q12H
     Route: 048
  8. MIRALAX [Concomitant]
     Active Substance: POLYETHYLENE GLYCOL 3350
     Dosage: 17 GRAM
  9. ZANTAC [Concomitant]
     Active Substance: RANITIDINE HYDROCHLORIDE
     Dosage: 50 MILLIGRAM, Q8HR
     Route: 042
  10. DACARBAZINE. [Suspect]
     Active Substance: DACARBAZINE
     Indication: HODGKIN^S DISEASE NODULAR SCLEROSIS STAGE IV
     Dosage: 375 MILLIGRAM/SQ. METER
     Route: 042
     Dates: start: 20190626
  11. BACTRIM DS [Concomitant]
     Active Substance: SULFAMETHOXAZOLE\TRIMETHOPRIM
     Dosage: 160 MILLIGRAM
     Route: 048
  12. ASTRAMORPH PF                      /00036302/ [Concomitant]
     Indication: PAIN
     Dosage: 2 MILLIGRAM
     Route: 042
  13. BRENTUXIMAB VEDOTIN [Suspect]
     Active Substance: BRENTUXIMAB VEDOTIN
     Indication: HODGKIN^S DISEASE NODULAR SCLEROSIS STAGE IV
     Dosage: UNK
     Route: 042
     Dates: start: 20190625
  14. EMLA [Concomitant]
     Active Substance: LIDOCAINE\PRILOCAINE
     Dosage: UNK
  15. BIOTENE DRY MOUTH [Concomitant]
     Dosage: 5 MILLILITER, Q8HR
     Route: 048
  16. HEPARIN [Concomitant]
     Active Substance: HEPARIN SODIUM
     Dosage: 5 MILLILITER
     Route: 042
  17. DOXORUBICIN [Suspect]
     Active Substance: DOXORUBICIN
     Indication: HODGKIN^S DISEASE NODULAR SCLEROSIS STAGE IV
     Dosage: 25 MILLIGRAM/SQ. METER
     Route: 042
     Dates: start: 20190625
  18. PREVACID [Concomitant]
     Active Substance: LANSOPRAZOLE
     Dosage: 30 MILLIGRAM, QD
     Route: 048
  19. ROXICODONE [Concomitant]
     Active Substance: OXYCODONE HYDROCHLORIDE
     Dosage: 5 MILLIGRAM, Q6HR
     Route: 048
  20. LEVAQUIN [Concomitant]
     Active Substance: LEVOFLOXACIN
     Dosage: 500 MILLIGRAM
     Route: 048

REACTIONS (2)
  - Febrile neutropenia [Recovered/Resolved]
  - Ileus [Recovered/Resolved]

NARRATIVE: CASE EVENT DATE: 20190710
